FAERS Safety Report 5059486-4 (Version None)
Quarter: 2006Q3

REPORT INFORMATION
  Report Type: 
  Country: None (occurrence: None)
  Receive Date: 20060724
  Receipt Date: 20060712
  Transmission Date: 20061208
  Serious: Yes (Death)
  Sender: FDA-Public Use
  Company Number: ZA-BRISTOL-MYERS SQUIBB COMPANY-13439351

PATIENT
  Age: 40 Year
  Sex: Male

DRUGS (4)
  1. DASATINIB [Suspect]
     Indication: LEUKAEMIA
     Route: 048
     Dates: start: 20060315, end: 20060710
  2. AMOXICILLIN [Concomitant]
     Dates: start: 20060705, end: 20060701
  3. PHARMATON [Concomitant]
     Dates: start: 20060530, end: 20060701
  4. ACETAMINOPHEN [Concomitant]
     Dates: start: 20060401, end: 20060701

REACTIONS (13)
  - BALANCE DISORDER [None]
  - BRAIN DEATH [None]
  - CARDIO-RESPIRATORY ARREST [None]
  - COUGH [None]
  - DIZZINESS [None]
  - FALL [None]
  - LIVER DISORDER [None]
  - MALIGNANT NEOPLASM PROGRESSION [None]
  - PHARYNGOLARYNGEAL PAIN [None]
  - REFUSAL OF TREATMENT BY PATIENT [None]
  - RESPIRATORY TRACT INFECTION [None]
  - SPLEEN DISORDER [None]
  - VISUAL ACUITY REDUCED [None]
